FAERS Safety Report 9394589 (Version 1)
Quarter: 2013Q3

REPORT INFORMATION
  Report Type: Spontaneous
  Country: US (occurrence: US)
  Receive Date: 20130711
  Receipt Date: 20130711
  Transmission Date: 20140515
  Serious: Yes (Other)
  Sender: FDA-Public Use
  Company Number: PHEH2013US014467

PATIENT
  Age: 41 Year
  Sex: Female

DRUGS (8)
  1. TEKTURNA [Suspect]
     Indication: HYPERTENSION
     Dosage: 150 MG,
     Dates: start: 2007
  2. TEKTURNA [Suspect]
     Dosage: 300 MG, QD
     Dates: start: 20071114
  3. CARAFATE [Suspect]
  4. FLEXERIL [Concomitant]
     Dosage: 5 MG,
  5. LASIX [Concomitant]
     Dosage: 80 MG
  6. DOXAZOSIN [Concomitant]
  7. ZOLOFT [Concomitant]
     Dosage: 150 MG, UNK
  8. ZOLOFT [Concomitant]
     Dosage: 50 MG, UNK

REACTIONS (22)
  - Diabetes mellitus [Unknown]
  - Renal failure [Unknown]
  - Diabetic nephropathy [Unknown]
  - Retinopathy [Unknown]
  - Anaemia [Unknown]
  - Proteinuria [Unknown]
  - Hyperkalaemia [Unknown]
  - Oedema [Unknown]
  - Coronary artery disease [Unknown]
  - Ischaemic cardiomyopathy [Unknown]
  - Myocardial infarction [Unknown]
  - Panic disorder [Unknown]
  - Fibrocystic breast disease [Unknown]
  - Eye disorder [Unknown]
  - Peptic ulcer [Unknown]
  - Abdominal pain [Unknown]
  - Anxiety [Unknown]
  - Depression [Unknown]
  - Sinusitis [Unknown]
  - Gastrooesophageal reflux disease [Unknown]
  - Muscle spasms [Unknown]
  - Diarrhoea [Unknown]
